FAERS Safety Report 6842248-2 (Version None)
Quarter: 2010Q3

REPORT INFORMATION
  Report Type: 
  Country: None (occurrence: None)
  Receive Date: 20100714
  Receipt Date: 20070725
  Transmission Date: 20110219
  Serious: No
  Sender: FDA-Public Use
  Company Number: US-PFIZER INC-2007062980

PATIENT
  Sex: Female
  Weight: 49.545 kg

DRUGS (3)
  1. CHANTIX [Suspect]
     Indication: SMOKING CESSATION THERAPY
     Dates: start: 20070601
  2. LIPITOR [Concomitant]
     Indication: BLOOD CHOLESTEROL INCREASED
  3. LUNESTA [Concomitant]
     Indication: SLEEP DISORDER

REACTIONS (2)
  - ABDOMINAL PAIN UPPER [None]
  - WEIGHT INCREASED [None]
